FAERS Safety Report 8180499-8 (Version None)
Quarter: 2012Q1

REPORT INFORMATION
  Report Type: 
  Country: None (occurrence: None)
  Receive Date: 20120302
  Receipt Date: 20120228
  Transmission Date: 20120608
  Serious: Yes (Life-Threatening, Hospitalization)
  Sender: FDA-Public Use
  Company Number: ES-B.I. PHARMACEUTICALS,INC./RIDGEFIELD-2012-ES-00080ES

PATIENT
  Age: 59 Year
  Sex: Male

DRUGS (6)
  1. IBUPROFEN [Suspect]
     Dosage: 600 MG
     Route: 048
  2. CARBOPLATIN [Suspect]
     Dosage: 582 MG
     Route: 048
     Dates: start: 20100318, end: 20100318
  3. HYDROCHLOROTHIAZIDE [Suspect]
     Dosage: 50 MG
     Route: 048
     Dates: start: 20031128
  4. ENANTYUM [Suspect]
     Dosage: 75 MG
     Route: 048
     Dates: start: 20091220
  5. PACLITAXEL [Concomitant]
     Dosage: 386 MG
     Route: 048
     Dates: start: 20100318, end: 20100318
  6. MICARDIS [Suspect]
     Indication: HYPERTENSION
     Dosage: 80 MG
     Route: 048
     Dates: start: 20031128

REACTIONS (2)
  - RENAL FAILURE ACUTE [None]
  - DRUG INTERACTION [None]
